FAERS Safety Report 16289540 (Version 1)
Quarter: 2019Q2

REPORT INFORMATION
  Report Type: Spontaneous
  Country: GB (occurrence: GB)
  Receive Date: 20190509
  Receipt Date: 20190509
  Transmission Date: 20190711
  Serious: Yes (Other)
  Sender: FDA-Public Use
  Company Number: GB-ACCORD-126157

PATIENT
  Age: 39 Year
  Sex: Female
  Weight: 91 kg

DRUGS (9)
  1. MACROGOL/MACROGOL STEARATE [Concomitant]
     Indication: CONSTIPATION
     Dosage: 1-2 DAILY
     Dates: start: 20190205, end: 20190225
  2. ZOLPIDEM [Concomitant]
     Active Substance: ZOLPIDEM\ZOLPIDEM TARTRATE
     Dosage: AT NIGHT OCCASIONAL USE ONLY
     Dates: start: 20181227, end: 20190108
  3. IBUPROFEN. [Concomitant]
     Active Substance: IBUPROFEN
     Dates: start: 20190122, end: 20190130
  4. BUPRENORPHINE. [Concomitant]
     Active Substance: BUPRENORPHINE
     Dates: start: 20190129
  5. NAPROXEN. [Concomitant]
     Active Substance: NAPROXEN
     Dates: start: 20190129, end: 20190226
  6. ARIPIPRAZOLE. [Suspect]
     Active Substance: ARIPIPRAZOLE
     Indication: PRODUCT USED FOR UNKNOWN INDICATION
     Dates: start: 20181227, end: 20190305
  7. GAVISCON [Concomitant]
     Active Substance: ALUMINUM HYDROXIDE\MAGNESIUM CARBONATE
     Dosage: TAKE 2 TO 4 UP TO 4 TIMES/DAY
     Dates: start: 20181227, end: 20190103
  8. OLANZAPINE. [Concomitant]
     Active Substance: OLANZAPINE
     Dates: start: 20190305
  9. LANSOPRAZOLE. [Concomitant]
     Active Substance: LANSOPRAZOLE
     Dates: start: 20190129, end: 20190226

REACTIONS (3)
  - Restless legs syndrome [Recovered/Resolved]
  - Genitourinary symptom [Unknown]
  - Pain in extremity [Unknown]
